FAERS Safety Report 14364346 (Version 1)
Quarter: 2018Q1

REPORT INFORMATION
  Report Type: Spontaneous
  Country: DE (occurrence: DE)
  Receive Date: 20180108
  Receipt Date: 20180108
  Transmission Date: 20180509
  Serious: Yes (Other)
  Sender: FDA-Public Use
  Company Number: DE-PFIZER INC-2018000864

PATIENT
  Age: 6 Year
  Sex: Female

DRUGS (1)
  1. SOBELIN [Suspect]
     Active Substance: CLINDAMYCIN HYDROCHLORIDE
     Indication: TONSILLITIS
     Dosage: UNK

REACTIONS (3)
  - Product quality issue [Unknown]
  - Choking [Unknown]
  - Nausea [Unknown]
